FAERS Safety Report 7685034-6 (Version None)
Quarter: 2011Q3

REPORT INFORMATION
  Report Type: 
  Country: None (occurrence: None)
  Receive Date: 20110801
  Receipt Date: 20110725
  Transmission Date: 20111222
  Serious: Yes (Hospitalization)
  Sender: FDA-Public Use
  Company Number: 2011029334

PATIENT
  Age: 49 Year
  Sex: Male
  Weight: 126.1 kg

DRUGS (12)
  1. PRINZIDE [Concomitant]
  2. LANTUS [Concomitant]
  3. PROZAC [Concomitant]
  4. CARDIZEM [Concomitant]
  5. VANCOMYCIN [Concomitant]
  6. COREG [Concomitant]
  7. POTASSIUM CHLORIDE [Concomitant]
  8. ZANTAC [Concomitant]
  9. HYDRALAZINE HCL [Concomitant]
  10. DUONEB [Concomitant]
  11. ZEMAIRA [Suspect]
     Indication: ALPHA-1 ANTI-TRYPSIN DEFICIENCY
     Dosage: 60 MG/KG 1X./7 DAYS, INFUSED 0.08 ML/KG/MIN (9.9ML/MIN) INTRAVENOUS
     Route: 042
     Dates: start: 20100127, end: 20110101
  12. HYDROCODONE BITARTRATE AND ACETAMINOPHEN [Concomitant]

REACTIONS (3)
  - INFECTION [None]
  - HAEMATOTOXICITY [None]
  - WOUND [None]
